FAERS Safety Report 7233047-0 (Version None)
Quarter: 2011Q1

REPORT INFORMATION
  Report Type: 
  Country: None (occurrence: None)
  Receive Date: 20110119
  Receipt Date: 20110110
  Transmission Date: 20110831
  Serious: Yes (Hospitalization)
  Sender: FDA-Public Use
  Company Number: PHHO2010US14076

PATIENT
  Weight: 64.853 kg

DRUGS (6)
  1. AFINITOR [Suspect]
     Indication: BREAST CANCER METASTATIC
     Dosage: 5 MG, DAILY
     Route: 048
     Dates: start: 20100716, end: 20100914
  2. PACLITAXEL [Suspect]
     Dosage: 70MG/M2
     Route: 042
     Dates: start: 20100924
  3. CISPLATIN [Suspect]
     Indication: BREAST CANCER METASTATIC
     Dosage: 20 MG/M2,
     Route: 042
     Dates: start: 20100716, end: 20100914
  4. AFINITOR [Suspect]
     Dosage: 5MG/DAY
     Route: 048
     Dates: start: 20100917
  5. PACLITAXEL [Suspect]
     Indication: BREAST CANCER METASTATIC
     Dosage: 70 MG/M2,
     Route: 042
     Dates: start: 20100716, end: 20100914
  6. PERCOCET [Concomitant]

REACTIONS (3)
  - THROMBOCYTOPENIA [None]
  - FEBRILE NEUTROPENIA [None]
  - PYREXIA [None]
